FAERS Safety Report 7073930-2 (Version None)
Quarter: 2010Q4

REPORT INFORMATION
  Report Type: 
  Country: None (occurrence: None)
  Receive Date: 20101029
  Receipt Date: 20100430
  Transmission Date: 20110411
  Serious: Yes (Hospitalization)
  Sender: FDA-Public Use
  Company Number: PHHO2001FI03094

PATIENT
  Sex: Female
  Weight: 62 kg

DRUGS (6)
  1. STI571/CGP57148B T35717+CAPS [Suspect]
     Indication: GASTROINTESTINAL STROMAL TUMOUR
     Dosage: 600 MG, QD
     Route: 048
     Dates: start: 20010321, end: 20060916
  2. IBUMETIN [Concomitant]
     Indication: RHEUMATOID ARTHRITIS
     Dosage: 1200 MG, BID
     Route: 048
     Dates: end: 20010404
  3. NORVASC [Concomitant]
     Indication: GLOMERULONEPHRITIS
     Dosage: 5 G, QD
     Route: 048
  4. ACCUPRO [Concomitant]
     Indication: GLOMERULONEPHRITIS
     Dosage: 20 MG, QD
     Route: 048
  5. LITALGIN [Concomitant]
  6. PRILOSEC [Concomitant]

REACTIONS (6)
  - ANURIA [None]
  - DEHYDRATION [None]
  - ILEUS [None]
  - NAUSEA [None]
  - VOMITING [None]
  - WEIGHT DECREASED [None]
